FAERS Safety Report 4268941-6 (Version None)
Quarter: 2004Q1

REPORT INFORMATION
  Report Type: 
  Country: None (occurrence: None)
  Receive Date: 20040109
  Receipt Date: 20040105
  Transmission Date: 20041129
  Serious: Yes (Hospitalization)
  Sender: FDA-Public Use
  Company Number: 2003180597US

PATIENT
  Age: 61 Year
  Sex: Female
  Weight: 69.8 kg

DRUGS (2)
  1. ZYVOX [Suspect]
     Dosage: 600 MG, BID, IV
     Route: 042
     Dates: start: 20030925, end: 20030929
  2. FLUOXETINE [Suspect]
     Dosage: 40 MG, QD, ORAL
     Route: 048

REACTIONS (1)
  - SICK SINUS SYNDROME [None]
